FAERS Safety Report 9758426 (Version 1)
Quarter: 2013Q4

REPORT INFORMATION
  Report Type: Spontaneous
  Country: US (occurrence: None)
  Receive Date: 20131213
  Receipt Date: 20131213
  Transmission Date: 20140711
  Serious: Yes (Life-Threatening, Hospitalization)
  Sender: FDA-Public Use
  Company Number: None

PATIENT
  Age: 14 Year
  Sex: Male
  Weight: 60 kg

DRUGS (2)
  1. BACTRIM [Suspect]
     Indication: ACNE
     Route: 048
     Dates: start: 201311
  2. EPIDUO CREAM [Concomitant]

REACTIONS (4)
  - Alveolitis allergic [None]
  - Viral infection [None]
  - Granulomatosis with polyangiitis [None]
  - Collagen-vascular disease [None]
